FAERS Safety Report 6937594-8 (Version None)
Quarter: 2010Q3

REPORT INFORMATION
  Report Type: 
  Country: None (occurrence: None)
  Receive Date: 20100823
  Receipt Date: 20100823
  Transmission Date: 20110219
  Serious: No
  Sender: FDA-Public Use
  Company Number: None

PATIENT
  Sex: Female
  Weight: 63.5036 kg

DRUGS (1)
  1. LEVOXYL [Suspect]
     Indication: THYROID DISORDER
     Dosage: 1 TAB MON WED FRI SUN 2 TAB TUES THURS SAT ORAL
     Route: 048

REACTIONS (26)
  - APATHY [None]
  - APHASIA [None]
  - ASTHENIA [None]
  - BALANCE DISORDER [None]
  - BLOOD THYROID STIMULATING HORMONE DECREASED [None]
  - CONSTIPATION [None]
  - DECREASED APPETITE [None]
  - DECREASED INTEREST [None]
  - DIZZINESS [None]
  - DRUG DISPENSING ERROR [None]
  - FAECES PALE [None]
  - FATIGUE [None]
  - FEAR [None]
  - FEELING ABNORMAL [None]
  - FEELING COLD [None]
  - GAIT DISTURBANCE [None]
  - HAIR TEXTURE ABNORMAL [None]
  - HEADACHE [None]
  - HYPERSOMNIA [None]
  - LISTLESS [None]
  - MASKED FACIES [None]
  - MEMORY IMPAIRMENT [None]
  - PAIN [None]
  - SOMNOLENCE [None]
  - THINKING ABNORMAL [None]
  - VISUAL IMPAIRMENT [None]
